FAERS Safety Report 8912016 (Version 2)
Quarter: 2012Q4

REPORT INFORMATION
  Report Type: 
  Country: US (occurrence: US)
  Receive Date: 20121115
  Receipt Date: 20121127
  Transmission Date: 20130627
  Serious: Yes (Death)
  Sender: FDA-Public Use
  Company Number: US-FRI-1000040242

PATIENT
  Sex: Male

DRUGS (4)
  1. CITALOPRAM [Suspect]
  2. OXYCODONE [Suspect]
  3. DIAZEPAM [Suspect]
  4. ALPRAZOLAM [Suspect]

REACTIONS (1)
  - Toxicity to various agents [Fatal]
